FAERS Safety Report 11808777 (Version 2)
Quarter: 2023Q4

REPORT INFORMATION
  Report Type: Spontaneous
  Country: US (occurrence: None)
  Receive Date: 20151207
  Receipt Date: 20231127
  Transmission Date: 20240110
  Serious: No
  Sender: FDA-Public Use
  Company Number: US-ROCHE-1555252

PATIENT
  Age: 5 Decade
  Sex: Female

DRUGS (1)
  1. LUCENTIS [Suspect]
     Active Substance: RANIBIZUMAB
     Indication: Diabetic retinal oedema
     Route: 065

REACTIONS (4)
  - Malaise [Unknown]
  - Eye pain [Unknown]
  - Headache [Unknown]
  - Photophobia [Unknown]
